FAERS Safety Report 7641612-1 (Version None)
Quarter: 2011Q3

REPORT INFORMATION
  Report Type: 
  Country: None (occurrence: None)
  Receive Date: 20110728
  Receipt Date: 20110708
  Transmission Date: 20111222
  Serious: Yes (Hospitalization)
  Sender: FDA-Public Use
  Company Number: US-GLAXOSMITHKLINE-A0715573A

PATIENT
  Age: 44 Year
  Sex: Male
  Weight: 109.1 kg

DRUGS (4)
  1. AVANDAMET [Suspect]
     Indication: TYPE 2 DIABETES MELLITUS
     Route: 048
     Dates: start: 20060901, end: 20070101
  2. AVANDIA [Suspect]
     Indication: TYPE 2 DIABETES MELLITUS
     Dosage: 8MG PER DAY
     Route: 048
     Dates: start: 20050101, end: 20060901
  3. METFORMIN HCL [Concomitant]
  4. GLUCOTROL XL [Concomitant]

REACTIONS (5)
  - CARDIAC FAILURE CONGESTIVE [None]
  - FLUID RETENTION [None]
  - MYOCARDIAL INFARCTION [None]
  - HEART INJURY [None]
  - FLUID OVERLOAD [None]
